FAERS Safety Report 6733406-6 (Version None)
Quarter: 2010Q2

REPORT INFORMATION
  Report Type: 
  Country: None (occurrence: None)
  Receive Date: 20100520
  Receipt Date: 20100330
  Transmission Date: 20101027
  Serious: Yes (Hospitalization, Other)
  Sender: FDA-Public Use
  Company Number: US-BAYER-201015637NA

PATIENT
  Age: 38 Year
  Sex: Female
  Weight: 68 kg

DRUGS (11)
  1. YAZ [Suspect]
     Indication: DRUG USE FOR UNKNOWN INDICATION
     Route: 048
     Dates: start: 20070701, end: 20090501
  2. BISOPROLOL FUMARATE [Concomitant]
     Route: 048
  3. TAVIST [Concomitant]
  4. LODRANE [Concomitant]
  5. ZIAC [Concomitant]
  6. MOTRIN [Concomitant]
     Route: 065
  7. AVELOX [Concomitant]
     Dosage: TOTAL DAILY DOSE: 200 MG  UNIT DOSE: 200 MG
     Route: 048
     Dates: start: 20090503, end: 20090517
  8. VICODIN [Concomitant]
     Dosage: 500 MG/5 MG
     Route: 048
     Dates: start: 20090503
  9. BC [Concomitant]
     Route: 065
  10. COUMADIN [Concomitant]
     Dosage: TOTAL DAILY DOSE: 5 MG  UNIT DOSE: 5 MG
     Route: 048
     Dates: start: 20090505, end: 20090505
  11. LOVENOX [Concomitant]
     Dosage: 1 MG/KG Q12H
     Route: 058
     Dates: start: 20090505, end: 20090505

REACTIONS (11)
  - BACK PAIN [None]
  - CHEST PAIN [None]
  - COUGH [None]
  - DYSPNOEA [None]
  - DYSPNOEA EXERTIONAL [None]
  - EXERCISE TOLERANCE DECREASED [None]
  - FATIGUE [None]
  - NAUSEA [None]
  - PLEURITIC PAIN [None]
  - PULMONARY EMBOLISM [None]
  - VENOUS THROMBOSIS [None]
